FAERS Safety Report 12206561 (Version 9)
Quarter: 2017Q2

REPORT INFORMATION
  Report Type: Spontaneous
  Country: US (occurrence: US)
  Receive Date: 20160324
  Receipt Date: 20170410
  Transmission Date: 20170830
  Serious: Yes (Other)
  Sender: FDA-Public Use
  Company Number: US-PFIZER INC-2016169648

PATIENT
  Age: 76 Year
  Sex: Female
  Weight: 58 kg

DRUGS (6)
  1. LATANOPROST BAUSCH+LOMB [Suspect]
     Active Substance: LATANOPROST
     Indication: OCULAR DISCOMFORT
  2. SYNTHROID [Concomitant]
     Active Substance: LEVOTHYROXINE SODIUM
     Indication: THYROID DISORDER
  3. LATANOPROST BAUSCH+LOMB [Suspect]
     Active Substance: LATANOPROST
     Indication: GLAUCOMA
     Dosage: ONE DROP IN EACH EYE, EVERY NIGHT
     Route: 047
     Dates: start: 2011
  4. LATANOPROST. [Suspect]
     Active Substance: LATANOPROST
     Indication: GLAUCOMA
     Dosage: ONE DROP IN EACH EYE, EVERY NIGHT
     Route: 047
     Dates: start: 2013
  5. LATANOPROST. [Suspect]
     Active Substance: LATANOPROST
     Indication: OCULAR DISCOMFORT
  6. SYNTHROID [Concomitant]
     Active Substance: LEVOTHYROXINE SODIUM
     Indication: AUTOIMMUNE THYROIDITIS
     Dosage: 0.5, ONCE IN THE MORNING
     Dates: start: 2007

REACTIONS (5)
  - Product dropper issue [Unknown]
  - Drug ineffective [Recovered/Resolved]
  - Condition aggravated [Unknown]
  - Eye disorder [Not Recovered/Not Resolved]
  - Dyspnoea [Unknown]
